FAERS Safety Report 5072267-0 (Version None)
Quarter: 2006Q3

REPORT INFORMATION
  Report Type: 
  Country: None (occurrence: None)
  Receive Date: 20060807
  Receipt Date: 20060725
  Transmission Date: 20061208
  Serious: Yes (Other)
  Sender: FDA-Public Use
  Company Number: US-AMGEN-US187725

PATIENT
  Sex: Male
  Weight: 70.4 kg

DRUGS (2)
  1. PROCRIT [Suspect]
     Indication: PRE-EXISTING DISEASE
     Route: 065
     Dates: start: 20051101, end: 20060701
  2. INTERFERON [Concomitant]
     Route: 065

REACTIONS (2)
  - APLASIA PURE RED CELL [None]
  - THERAPEUTIC RESPONSE DECREASED [None]
